FAERS Safety Report 22625772 (Version 1)
Quarter: 2023Q2

REPORT INFORMATION
  Report Type: Spontaneous
  Country: US (occurrence: None)
  Receive Date: 20230620
  Receipt Date: 20230620
  Transmission Date: 20230722
  Serious: No
  Sender: FDA-Public Use
  Company Number: None

PATIENT
  Age: 73 Year
  Sex: Female
  Weight: 59.4 kg

DRUGS (1)
  1. DUPIXENT [Suspect]
     Active Substance: DUPILUMAB
     Indication: Eczema
     Dosage: FREQUENCY : EVERY OTHER WEEK;?
     Route: 058
     Dates: start: 20230531, end: 20230617

REACTIONS (10)
  - Injection site erythema [None]
  - Injection site swelling [None]
  - Myalgia [None]
  - Nausea [None]
  - Decreased appetite [None]
  - Pyrexia [None]
  - Fatigue [None]
  - Muscular weakness [None]
  - Feeling abnormal [None]
  - Cellulitis [None]

NARRATIVE: CASE EVENT DATE: 20230617
